FAERS Safety Report 4571820-8 (Version None)
Quarter: 2005Q1

REPORT INFORMATION
  Report Type: 
  Country: None (occurrence: None)
  Receive Date: 20050207
  Receipt Date: 20041130
  Transmission Date: 20050727
  Serious: Yes (Hospitalization)
  Sender: FDA-Public Use
  Company Number: DE-MERCK-0412DEU00019

PATIENT
  Age: 64 Year
  Sex: Male

DRUGS (12)
  1. VIOXX [Suspect]
     Indication: SPINAL DISORDER
     Route: 048
     Dates: start: 20010301, end: 20020601
  2. VIOXX [Suspect]
     Route: 048
     Dates: start: 20020601, end: 20021104
  3. VIOXX [Suspect]
     Route: 048
     Dates: start: 20030113, end: 20030825
  4. VIOXX [Suspect]
     Route: 048
     Dates: start: 20030826, end: 20031001
  5. VIOXX [Suspect]
     Route: 048
     Dates: start: 20021111, end: 20021111
  6. VIOXX [Suspect]
     Route: 048
     Dates: start: 20021203, end: 20030112
  7. VIOXX [Suspect]
     Indication: ARTHROPATHY
     Route: 048
     Dates: start: 20010301, end: 20020601
  8. VIOXX [Suspect]
     Route: 048
     Dates: start: 20020601, end: 20021104
  9. VIOXX [Suspect]
     Route: 048
     Dates: start: 20030113, end: 20030825
  10. VIOXX [Suspect]
     Route: 048
     Dates: start: 20030826, end: 20031001
  11. VIOXX [Suspect]
     Route: 048
     Dates: start: 20021111, end: 20021111
  12. VIOXX [Suspect]
     Route: 048
     Dates: start: 20021203, end: 20030112

REACTIONS (10)
  - ACUTE CORONARY SYNDROME [None]
  - AORTIC STENOSIS [None]
  - CARDIAC DISORDER [None]
  - CARDIAC VALVE DISEASE [None]
  - CORONARY ARTERY DISEASE [None]
  - GASTROINTESTINAL HAEMORRHAGE [None]
  - POST PROCEDURAL COMPLICATION [None]
  - PYREXIA [None]
  - RESPIRATORY DISORDER [None]
  - VENTRICULAR DYSFUNCTION [None]
